FAERS Safety Report 10224470 (Version 11)
Quarter: 2015Q3

REPORT INFORMATION
  Report Type: Report from Study
  Country: US (occurrence: US)
  Receive Date: 20140609
  Receipt Date: 20150720
  Transmission Date: 20151125
  Serious: Yes (Hospitalization, Other)
  Sender: FDA-Public Use
  Company Number: US-SA-2014SA071761

PATIENT
  Age: 34 Year
  Sex: Male

DRUGS (1)
  1. AUBAGIO [Suspect]
     Active Substance: TERIFLUNOMIDE
     Indication: MULTIPLE SCLEROSIS
     Route: 048
     Dates: start: 20140521

REACTIONS (18)
  - Memory impairment [Not Recovered/Not Resolved]
  - Asthenia [Unknown]
  - Dysgraphia [Unknown]
  - Depression [Unknown]
  - Diarrhoea [Recovering/Resolving]
  - Impaired work ability [Unknown]
  - Fatigue [Not Recovered/Not Resolved]
  - Pigmentation disorder [Recovering/Resolving]
  - Insomnia [Unknown]
  - Lower respiratory tract infection [Unknown]
  - Hypoaesthesia [Unknown]
  - Asthenia [Not Recovered/Not Resolved]
  - Speech disorder [Unknown]
  - Mycobacterium tuberculosis complex test positive [Unknown]
  - Gait disturbance [Not Recovered/Not Resolved]
  - Upper respiratory tract infection [Recovered/Resolved]
  - Condition aggravated [Unknown]
  - Diplopia [Not Recovered/Not Resolved]

NARRATIVE: CASE EVENT DATE: 201405
